FAERS Safety Report 9518355 (Version 1)
Quarter: 2013Q3

REPORT INFORMATION
  Report Type: Spontaneous
  Country: IE (occurrence: IE)
  Receive Date: 20130912
  Receipt Date: 20130912
  Transmission Date: 20140515
  Serious: Yes (Other)
  Sender: FDA-Public Use
  Company Number: IE-ALEXION PHARMACEUTICALS INC.-A201302139

PATIENT
  Sex: 0

DRUGS (1)
  1. SOLIRIS 300MG [Suspect]
     Indication: HAEMOLYTIC URAEMIC SYNDROME
     Dosage: UNK
     Route: 042
     Dates: start: 201008

REACTIONS (2)
  - Meningococcal bacteraemia [Unknown]
  - Headache [Unknown]
